FAERS Safety Report 9176443 (Version 1)
Quarter: 2013Q1

REPORT INFORMATION
  Report Type: Spontaneous
  Country: US (occurrence: None)
  Receive Date: 20130320
  Receipt Date: 20130320
  Transmission Date: 20140127
  Serious: Yes (Other)
  Sender: FDA-Public Use
  Company Number: None

PATIENT
  Age: 58 Year
  Sex: Female

DRUGS (2)
  1. PEGASYS [Suspect]
     Indication: HEPATITIS C
     Dosage: 180MCG ONCE WEEKLY SUBCUTANEOUS
     Route: 058
     Dates: start: 20120226, end: 20130318
  2. RIBAPAK [Suspect]
     Indication: HEPATITIS C
     Dosage: 600MG + 400MG TWICE A DAY PO
     Route: 048
     Dates: start: 20120226, end: 20130318

REACTIONS (2)
  - Anaemia [None]
  - Dyspnoea [None]
